FAERS Safety Report 15201998 (Version 2)
Quarter: 2018Q3

REPORT INFORMATION
  Report Type: Report from Study
  Country: CA (occurrence: CA)
  Receive Date: 20180726
  Receipt Date: 20180917
  Transmission Date: 20181010
  Serious: Yes (Other)
  Sender: FDA-Public Use
  Company Number: CA-SA-2015SA122660

PATIENT
  Age: 32 Year
  Sex: Female
  Weight: 55 kg

DRUGS (13)
  1. DIPHENHYDRAMINE HYDROCHLORIDE. [Suspect]
     Active Substance: DIPHENHYDRAMINE HYDROCHLORIDE
     Dosage: 50 MG,Q4H
     Route: 048
     Dates: start: 20150812
  2. ZANTAC [Concomitant]
     Active Substance: RANITIDINE HYDROCHLORIDE
     Dosage: 150 MG,BID
     Route: 048
     Dates: start: 20150811
  3. ALEMTUZUMAB [Suspect]
     Active Substance: ALEMTUZUMAB
     Dosage: 12 MG,QD
     Route: 041
     Dates: start: 20150812, end: 20150812
  4. RANITIDINE. [Concomitant]
     Active Substance: RANITIDINE
     Dosage: 150 MG,UNK
     Route: 048
     Dates: start: 20150811
  5. ALEMTUZUMAB [Suspect]
     Active Substance: ALEMTUZUMAB
     Dosage: 12 MG,QD
     Route: 041
     Dates: start: 20150812, end: 20150814
  6. ACICLOVIR [Concomitant]
     Active Substance: ACYCLOVIR
     Dosage: 200 MG,BID
     Route: 048
     Dates: start: 20150812
  7. GABAPENTIN. [Concomitant]
     Active Substance: GABAPENTIN
     Dosage: 600 MG,BID
     Route: 048
  8. GRAVOL [Suspect]
     Active Substance: DIMENHYDRINATE
     Dosage: 50 MG,Q4H
     Route: 048
     Dates: start: 20150812
  9. PARACETAMOL [Concomitant]
     Active Substance: ACETAMINOPHEN
     Dosage: 975 MG,UNK
     Route: 048
     Dates: start: 20150812
  10. METHYLPREDNISOLONE. [Concomitant]
     Active Substance: METHYLPREDNISOLONE
     Dosage: 1 G,QD
     Route: 042
     Dates: start: 20150812
  11. FISH OIL [Concomitant]
     Active Substance: FISH OIL
     Dosage: 1200 MG,QD
     Route: 048
  12. ERGOCALCIFEROL. [Concomitant]
     Active Substance: ERGOCALCIFEROL
     Dosage: 3000 IU,QD
     Route: 048
  13. REACTINE [CETIRIZINE HYDROCHLORIDE] [Concomitant]
     Active Substance: CETIRIZINE HYDROCHLORIDE
     Dosage: 10 MG,BID
     Route: 048
     Dates: start: 20150811

REACTIONS (31)
  - Tremor [Recovered/Resolved]
  - Palpitations [Recovered/Resolved]
  - Abdominal pain upper [Recovered/Resolved]
  - Lymphocyte count decreased [Recovered/Resolved]
  - Urine ketone body present [Recovered/Resolved]
  - Heart rate increased [Unknown]
  - Pain [Recovered/Resolved]
  - Jaundice [Not Recovered/Not Resolved]
  - Thyroxine free increased [Recovered/Resolved]
  - Hypotension [Unknown]
  - Dizziness [Not Recovered/Not Resolved]
  - Pain [Recovered/Resolved]
  - Feeling abnormal [Unknown]
  - Pallor [Recovered/Resolved]
  - Haemoglobin urine present [Recovered/Resolved]
  - Chills [Recovered/Resolved]
  - Thrombosis [Recovered/Resolved]
  - Crystal urine present [Unknown]
  - Urine abnormality [Not Recovered/Not Resolved]
  - Syncope [Recovered/Resolved]
  - Protein urine present [Recovered/Resolved]
  - Red blood cells urine positive [Recovered/Resolved]
  - Eosinophil count increased [Recovered/Resolved]
  - Back pain [Recovered/Resolved]
  - Nausea [Recovered/Resolved]
  - Eye pain [Recovered/Resolved]
  - Hyperthyroidism [Not Recovered/Not Resolved]
  - White blood cells urine positive [Recovered/Resolved]
  - Blood thyroid stimulating hormone decreased [Recovered/Resolved]
  - Haemorrhoids thrombosed [Recovering/Resolving]
  - Pain in extremity [Recovered/Resolved]

NARRATIVE: CASE EVENT DATE: 20150812
